FAERS Safety Report 4547293-8 (Version None)
Quarter: 2005Q1

REPORT INFORMATION
  Report Type: 
  Country: None (occurrence: None)
  Receive Date: 20050105
  Receipt Date: 20041221
  Transmission Date: 20050727
  Serious: Yes (Other)
  Sender: FDA-Public Use
  Company Number: 211030

PATIENT
  Age: 22 Year
  Sex: Female

DRUGS (1)
  1. PROTROPIN [Suspect]
     Indication: GROWTH HORMONE DEFICIENCY
     Dates: end: 19960101

REACTIONS (1)
  - HEPATIC NEOPLASM MALIGNANT [None]
